FAERS Safety Report 11364733 (Version 2)
Quarter: 2015Q3

REPORT INFORMATION
  Report Type: Spontaneous
  Country: US (occurrence: US)
  Receive Date: 20150811
  Receipt Date: 20150825
  Transmission Date: 20151125
  Serious: Yes (Hospitalization)
  Sender: FDA-Public Use
  Company Number: US-PFIZER INC-2015264614

PATIENT
  Age: 71 Year
  Sex: Female
  Weight: 116 kg

DRUGS (2)
  1. XARELTO [Concomitant]
     Active Substance: RIVAROXABAN
     Dosage: UNK
  2. PREMARIN [Suspect]
     Active Substance: ESTROGENS, CONJUGATED
     Indication: VULVOVAGINAL DRYNESS
     Dosage: 1 G, AS NEEDED (SOMETIMES USED IT ONCE A WEEK AND SOMETIMES SKIPPED A MONTH)
     Route: 067
     Dates: end: 201507

REACTIONS (5)
  - Intentional product misuse [Unknown]
  - Thrombosis [Unknown]
  - Pulmonary thrombosis [Unknown]
  - Dyspnoea [Unknown]
  - Expired product administered [Unknown]
